FAERS Safety Report 6010154-1 (Version None)
Quarter: 2008Q4

REPORT INFORMATION
  Report Type: 
  Country: None (occurrence: None)
  Receive Date: 20081217
  Receipt Date: 20081217
  Transmission Date: 20090506
  Serious: No
  Sender: FDA-Public Use
  Company Number: None

PATIENT
  Age: 69 Year
  Sex: Female
  Weight: 65.7716 kg

DRUGS (2)
  1. REGLAN [Suspect]
     Indication: COLONOSCOPY
     Dosage: 10 MG ^1^ PILL BEFORE PREP FOR COLONOSCOPY
     Dates: start: 20081201
  2. REGLAN [Suspect]
     Indication: PROPHYLAXIS OF NAUSEA AND VOMITING
     Dosage: 10 MG ^1^ PILL BEFORE PREP FOR COLONOSCOPY
     Dates: start: 20081201

REACTIONS (1)
  - DRUG HYPERSENSITIVITY [None]
